FAERS Safety Report 8021720-6 (Version None)
Quarter: 2012Q1

REPORT INFORMATION
  Report Type: 
  Country: None (occurrence: None)
  Receive Date: 20120104
  Receipt Date: 20111221
  Transmission Date: 20120608
  Serious: Yes (Hospitalization)
  Sender: FDA-Public Use
  Company Number: US-UCBSA-041846

PATIENT
  Age: 75 Year
  Sex: Female
  Weight: 69.4 kg

DRUGS (5)
  1. SULFASALAZINE [Concomitant]
     Route: 048
  2. CERTOLIZUMAB PEGOL [Suspect]
     Indication: RHEUMATOID ARTHRITIS
     Dosage: 200 MG, 4 DOSES RECEIVED
     Route: 058
     Dates: start: 20110711, end: 20110920
  3. METHOTREXATE [Concomitant]
     Dosage: 20 MG EVERY WEEK
     Route: 048
  4. FOLIC ACID [Concomitant]
     Dosage: DAILY DOSE: 1 MG
     Route: 048
  5. NORVASAC [Concomitant]
     Dosage: DAILY DOSE: 5 MG
     Route: 048

REACTIONS (2)
  - RENAL MASS [None]
  - EMPHYSEMATOUS CYSTITIS [None]
